FAERS Safety Report 8581187-6 (Version None)
Quarter: 2012Q3

REPORT INFORMATION
  Report Type: 
  Country: None (occurrence: None)
  Receive Date: 20120809
  Receipt Date: 20120731
  Transmission Date: 20120928
  Serious: Yes (Hospitalization, Other)
  Sender: FDA-Public Use
  Company Number: US-BAYER-2012-045842

PATIENT
  Age: 29 Year
  Sex: Female

DRUGS (5)
  1. YAZ [Suspect]
     Dosage: UNK
  2. LEVAQUIN [Concomitant]
     Indication: URINARY TRACT INFECTION
     Dosage: UNK
  3. LEVAQUIN [Concomitant]
  4. YASMIN [Suspect]
     Dosage: UNK
  5. PERCOCET [Concomitant]
     Dosage: 5/325 ONE OR TWO TABLETS EVERY 6 TO 8 HOURS AS NEEDED

REACTIONS (8)
  - INJURY [None]
  - ANHEDONIA [None]
  - PULMONARY EMBOLISM [None]
  - DEEP VEIN THROMBOSIS [None]
  - PAIN [None]
  - ANXIETY [None]
  - FEAR [None]
  - EMOTIONAL DISTRESS [None]
